FAERS Safety Report 6051949-8 (Version None)
Quarter: 2009Q1

REPORT INFORMATION
  Report Type: 
  Country: None (occurrence: None)
  Receive Date: 20090121
  Receipt Date: 20080313
  Transmission Date: 20090719
  Serious: Yes (Hospitalization, Other)
  Sender: FDA-Public Use
  Company Number: HQWYE202016JUL04

PATIENT
  Age: 60 Year
  Sex: Female
  Weight: 113.5 kg

DRUGS (2)
  1. PREMPRO [Suspect]
     Indication: HORMONE REPLACEMENT THERAPY
     Dosage: ORAL
     Route: 048
     Dates: start: 19980201, end: 19990901
  2. PREMPRO [Suspect]
     Indication: MENSTRUATION IRREGULAR
     Dosage: ORAL
     Route: 048
     Dates: start: 19980201, end: 19990901

REACTIONS (2)
  - DEEP VEIN THROMBOSIS [None]
  - PULMONARY EMBOLISM [None]
